FAERS Safety Report 20309104 (Version 1)
Quarter: 2022Q1

REPORT INFORMATION
  Report Type: Spontaneous
  Country: US (occurrence: None)
  Receive Date: 20220106
  Receipt Date: 20220106
  Transmission Date: 20220423
  Serious: No
  Sender: FDA-Public Use
  Company Number: None

PATIENT
  Age: 88 Year
  Sex: Male

DRUGS (1)
  1. ABIRATERONE [Suspect]
     Active Substance: ABIRATERONE
     Dosage: 750MG DAILY ORAL?
     Route: 048
     Dates: start: 2021

REACTIONS (3)
  - Fatigue [None]
  - Dehydration [None]
  - Confusional state [None]

NARRATIVE: CASE EVENT DATE: 20211028
